FAERS Safety Report 16639796 (Version 1)
Quarter: 2019Q3

REPORT INFORMATION
  Report Type: Spontaneous
  Country: US (occurrence: US)
  Receive Date: 20190727
  Receipt Date: 20190727
  Transmission Date: 20191004
  Serious: No
  Sender: FDA-Public Use
  Company Number: US-TEVA-2019-US-1083549

PATIENT
  Weight: 80.81 kg

DRUGS (2)
  1. TAMOXIFEN CITRATE TABLETS [Suspect]
     Active Substance: TAMOXIFEN CITRATE
     Dates: start: 2016
  2. LISINOPRIL. [Concomitant]
     Active Substance: LISINOPRIL
     Indication: HYPERTENSION
     Dates: start: 2016

REACTIONS (2)
  - Drug ineffective [Unknown]
  - Product quality issue [Unknown]
